FAERS Safety Report 8167830-4 (Version None)
Quarter: 2012Q1

REPORT INFORMATION
  Report Type: 
  Country: None (occurrence: None)
  Receive Date: 20120227
  Receipt Date: 20120213
  Transmission Date: 20120608
  Serious: Yes (Hospitalization, Other)
  Sender: FDA-Public Use
  Company Number: US-ROCHE-1040069

PATIENT
  Sex: Female

DRUGS (6)
  1. HERCEPTIN [Suspect]
     Indication: BREAST CANCER
     Route: 065
  2. DOXORUBICIN HCL [Suspect]
     Indication: BREAST CANCER
     Route: 065
  3. CARBOPLATIN [Suspect]
     Indication: BREAST CANCER
     Route: 065
  4. DOCETAXEL [Suspect]
     Indication: BREAST CANCER
     Route: 065
  5. CYCLOPHOSPHAMIDE [Suspect]
     Indication: BREAST CANCER
     Route: 065
  6. PACLITAXEL [Suspect]
     Indication: BREAST CANCER
     Route: 065

REACTIONS (10)
  - FEBRILE NEUTROPENIA [None]
  - RENAL FAILURE ACUTE [None]
  - NEUTROPENIA [None]
  - BONE MARROW FAILURE [None]
  - HYPOTENSION [None]
  - ANAEMIA [None]
  - EJECTION FRACTION DECREASED [None]
  - BACTERAEMIA [None]
  - CARDIOTOXICITY [None]
  - THROMBOCYTOPENIA [None]
